FAERS Safety Report 18242833 (Version 3)
Quarter: 2021Q2

REPORT INFORMATION
  Report Type: Spontaneous
  Country: US (occurrence: US)
  Receive Date: 20200908
  Receipt Date: 20210602
  Transmission Date: 20210717
  Serious: No
  Sender: FDA-Public Use
  Company Number: US-PFIZER INC-2020342742

PATIENT
  Age: 69 Year
  Sex: Female

DRUGS (4)
  1. IBRANCE [Suspect]
     Active Substance: PALBOCICLIB
     Dosage: 100 MG, CYCLIC (21 DAYS, OFF FOR 7 DAYS)
  2. IBRANCE [Suspect]
     Active Substance: PALBOCICLIB
     Dosage: 75 MG
  3. IBRANCE [Suspect]
     Active Substance: PALBOCICLIB
     Dosage: 100 MG
  4. IBRANCE [Suspect]
     Active Substance: PALBOCICLIB
     Indication: BREAST CANCER METASTATIC
     Dosage: 100 MG, CYCLIC (3 WEEKS 21 DAYS, THEN OFF 7 DAYS)
     Route: 048

REACTIONS (9)
  - Arthritis [Unknown]
  - Trigger finger [Unknown]
  - Asthenia [Unknown]
  - Nerve compression [Unknown]
  - Neutrophil count decreased [Unknown]
  - White blood cell count abnormal [Unknown]
  - Trichorrhexis [Not Recovered/Not Resolved]
  - Product storage error [Unknown]
  - Tremor [Unknown]

NARRATIVE: CASE EVENT DATE: 2017
